FAERS Safety Report 13252382 (Version 1)
Quarter: 2017Q1

REPORT INFORMATION
  Report Type: Spontaneous
  Country: FR (occurrence: FR)
  Receive Date: 20170220
  Receipt Date: 20170220
  Transmission Date: 20170428
  Serious: Yes (Other)
  Sender: FDA-Public Use
  Company Number: FR-JNJFOC-20170216278

PATIENT

DRUGS (2)
  1. DOXORUBICIN HYDROCHLORIDE. [Suspect]
     Active Substance: DOXORUBICIN HYDROCHLORIDE
     Indication: BONE SARCOMA
     Dosage: MEDIAN DOXORUBICIN DOSE WAS 112 MG AT FIRST CYCLE (RANGE 84-148)
     Route: 065
  2. DOXORUBICIN HYDROCHLORIDE. [Suspect]
     Active Substance: DOXORUBICIN HYDROCHLORIDE
     Indication: SOFT TISSUE SARCOMA
     Dosage: MEDIAN DOXORUBICIN DOSE WAS 112 MG AT FIRST CYCLE (RANGE 84-148)
     Route: 065

REACTIONS (5)
  - Gastrointestinal toxicity [Unknown]
  - Off label use [Unknown]
  - Febrile neutropenia [Unknown]
  - Haematotoxicity [Unknown]
  - Product use issue [Unknown]
